FAERS Safety Report 20442258 (Version 2)
Quarter: 2022Q1

REPORT INFORMATION
  Report Type: Spontaneous
  Country: TR (occurrence: TR)
  Receive Date: 20220208
  Receipt Date: 20220216
  Transmission Date: 20220423
  Serious: Yes (Death, Hospitalization, Other)
  Sender: FDA-Public Use
  Company Number: TR-CELLTRION INC.-2022TR001192

PATIENT

DRUGS (6)
  1. RITUXIMAB [Suspect]
     Active Substance: RITUXIMAB
     Indication: Chronic lymphocytic leukaemia
     Dosage: FOR ONE YEAR AFTER TWO COURSES OF CYCLOPHOSPHAMIDE, VINCRISTINE, AND PREDNISOLONE (CVP) REGIMEN
  2. FLUDARABINE [Suspect]
     Active Substance: FLUDARABINE PHOSPHATE
     Indication: Chronic lymphocytic leukaemia
     Dosage: FOR ONE YEAR AFTER TWO COURSES OF CYCLOPHOSPHAMIDE, VINCRISTINE, AND PREDNISOLONE (CVP) REGIMEN
  3. CYCLOPHOSPHAMIDE [Suspect]
     Active Substance: CYCLOPHOSPHAMIDE
     Indication: Chronic lymphocytic leukaemia
     Dosage: FOR ONE YEAR AFTER TWO COURSES OF CYCLOPHOSPHAMIDE, VINCRISTINE, AND PREDNISOLONE (CVP) REGIMEN
  4. METHYLPREDNISOLONE [Concomitant]
     Active Substance: METHYLPREDNISOLONE
     Dosage: 250 MG, FOR THREE DAYS
  5. METHYLPREDNISOLONE [Concomitant]
     Active Substance: METHYLPREDNISOLONE
     Dosage: 40 MG /DAY
  6. ANAKINRA [Concomitant]
     Active Substance: ANAKINRA
     Dosage: 400 MG/DAY
     Route: 042

REACTIONS (3)
  - Respiratory failure [Fatal]
  - COVID-19 pneumonia [Unknown]
  - Cytokine storm [Unknown]
